FAERS Safety Report 11758714 (Version 2)
Quarter: 2016Q1

REPORT INFORMATION
  Report Type: Spontaneous
  Country: US (occurrence: US)
  Receive Date: 20151120
  Receipt Date: 20160210
  Transmission Date: 20160525
  Serious: Yes (Death, Hospitalization, Other)
  Sender: FDA-Public Use
  Company Number: US-009507513-1511USA010945

PATIENT
  Sex: Male
  Weight: 120.18 kg

DRUGS (1)
  1. JANUVIA [Suspect]
     Active Substance: SITAGLIPTIN PHOSPHATE
     Indication: TYPE 2 DIABETES MELLITUS
     Dosage: 100 MG, QD
     Route: 048
     Dates: start: 20100924, end: 20120307

REACTIONS (6)
  - Adenocarcinoma pancreas [Fatal]
  - Bile duct obstruction [Unknown]
  - Hepatic cirrhosis [Unknown]
  - Dementia [Unknown]
  - Knee operation [Unknown]
  - Gout [Unknown]

NARRATIVE: CASE EVENT DATE: 20111102
